FAERS Safety Report 16930928 (Version 1)
Quarter: 2019Q4

REPORT INFORMATION
  Report Type: Spontaneous
  Country: GB (occurrence: GB)
  Receive Date: 20191017
  Receipt Date: 20191017
  Transmission Date: 20200122
  Serious: Yes (Hospitalization)
  Sender: FDA-Public Use
  Company Number: GB-MYLANLABS-2019M1097571

PATIENT
  Age: 81 Year
  Sex: Female
  Weight: 54 kg

DRUGS (33)
  1. GASTROCOTE                         /00902401/ [Concomitant]
     Dosage: AFTER FOOD
     Dates: start: 19880518, end: 20190513
  2. FLUTICASONE FUROATE [Concomitant]
     Active Substance: FLUTICASONE FUROATE
     Dosage: 1 DOSAGE FORM, QD
     Dates: start: 20190509
  3. CANDESARTAN. [Concomitant]
     Active Substance: CANDESARTAN
     Dosage: 1 DOSAGE FORM, QD
     Dates: start: 20190509
  4. NIZATIDINE. [Concomitant]
     Active Substance: NIZATIDINE
     Dosage: EVERY NIGHT
     Dates: start: 19890614, end: 20190513
  5. FOSFOMYCIN [Concomitant]
     Active Substance: FOSFOMYCIN
     Indication: URINARY TRACT INFECTION
     Dosage: TAKE ONE
     Dates: start: 20190703, end: 20190704
  6. MUCAINE                            /01450201/ [Concomitant]
     Dosage: BEFORE FOOD
     Dates: start: 19891023, end: 20190513
  7. PREDNISOLONE. [Concomitant]
     Active Substance: PREDNISOLONE
     Dosage: EVERY NIGHT
     Dates: start: 19880518
  8. FLUOXETINE [Suspect]
     Active Substance: FLUOXETINE HYDROCHLORIDE
     Indication: PRODUCT USED FOR UNKNOWN INDICATION
     Dosage: (MAY WISH TO START WITH HALF A T..
     Dates: start: 20190723
  9. OMEPRAZOLE. [Concomitant]
     Active Substance: OMEPRAZOLE
     Dosage: FOR 1 WEEK
     Dates: start: 20190509
  10. PARACETAMOL [Concomitant]
     Active Substance: ACETAMINOPHEN
     Dosage: KE ONE OR TWO 4 TIMES/DAY
     Dates: start: 20190509
  11. CEFALEXIN [Concomitant]
     Active Substance: CEPHALEXIN
     Dosage: 4 DOSAGE FORM, QD
     Dates: start: 20190724, end: 20190731
  12. PREMARIN [Concomitant]
     Active Substance: ESTROGENS, CONJUGATED
     Dosage: 1 DOSAGE FORM, QD
     Dates: start: 19880804, end: 20190513
  13. OPTIVE [Concomitant]
     Active Substance: CARBOXYMETHYLCELLULOSE SODIUM\GLYCERIN
     Dosage: USE AS DIRECTED
     Dates: start: 20190509
  14. ONDANSETRON [Concomitant]
     Active Substance: ONDANSETRON
     Dosage: 2 DOSAGE FORM, QD
     Dates: start: 20190724, end: 20190729
  15. DIFLUNISAL. [Concomitant]
     Active Substance: DIFLUNISAL
     Dosage: 4 DOSAGE FORM, QD
     Dates: start: 19880518, end: 20190513
  16. DOMPERIDONE [Concomitant]
     Active Substance: DOMPERIDONE
     Indication: NAUSEA
     Dosage: 3 DOSAGE FORM, QD
     Dates: start: 20190701, end: 20190706
  17. SERTRALINE [Concomitant]
     Active Substance: SERTRALINE HYDROCHLORIDE
     Dosage: USE AS DIRECTED
     Dates: start: 20190722
  18. TRAMADOL. [Concomitant]
     Active Substance: TRAMADOL
     Dosage: TO  TAKE ONE CAPSULE  FOUR TIMES  DAILY WHEN RE...
     Dates: start: 20190509
  19. AMITRIPTYLINE HYDROCHLORIDE. [Concomitant]
     Active Substance: AMITRIPTYLINE HYDROCHLORIDE
     Dosage: ONE TWICE A DAY FOUR EVERY NIGHT
     Dates: start: 19890807, end: 20190513
  20. EDOXABAN [Concomitant]
     Active Substance: EDOXABAN TOSYLATE
     Dosage: 1 DOSAGE FORM, QD
     Dates: start: 20190509
  21. LACTULOSE. [Concomitant]
     Active Substance: LACTULOSE
     Dosage: 30 MILLILITER, QD
     Dates: start: 19880518, end: 20190513
  22. HYDROCORTISONE. [Concomitant]
     Active Substance: HYDROCORTISONE
     Dosage: APPLY
     Dates: start: 20190722, end: 20190805
  23. DEXTROPROPOXYPHENE [Concomitant]
     Active Substance: PROPOXYPHENE HYDROCHLORIDE
     Indication: PAIN
     Dosage: 1OCC
     Dates: start: 19891212, end: 20190513
  24. COLECALCIFEROL [Concomitant]
     Active Substance: CHOLECALCIFEROL
     Dosage: IN THE MORNING
     Dates: start: 20190509
  25. MACROGOL [Concomitant]
     Active Substance: POLYETHYLENE GLYCOLS
     Dosage: USE AS DIRECTED
     Dates: start: 20190509
  26. SITAGLIPTIN [Concomitant]
     Active Substance: SITAGLIPTIN
     Dosage: 1 DOSAGE FORM, QD
     Dates: start: 20190509
  27. GAVISCON ADVANCE                   /01340901/ [Concomitant]
     Dosage: USE AS DIRECTED
     Dates: start: 20190509
  28. AZATHIOPRINE. [Concomitant]
     Active Substance: AZATHIOPRINE
     Dosage: 2 DOSAGE FORM, QD
     Dates: start: 19880518, end: 20190513
  29. CO-PROXAMOL [Concomitant]
     Active Substance: ACETAMINOPHEN\PROPOXYPHENE HYDROCHLORIDE
     Dosage: 8 DOSAGE FORM, QD
     Dates: start: 19880518, end: 20190513
  30. TEMAZEPAM. [Concomitant]
     Active Substance: TEMAZEPAM
     Dosage: AT NIGHT
     Dates: start: 20190509
  31. SUCRALFATE. [Concomitant]
     Active Substance: SUCRALFATE
     Dosage: 4 DOSAGE FORM, QD
     Dates: start: 19881230, end: 20190513
  32. BENORILATE [Concomitant]
     Active Substance: BENORILATE
     Dosage: 10 TWICE A DAY
     Dates: start: 19900110, end: 20190513
  33. FUROSEMIDE. [Concomitant]
     Active Substance: FUROSEMIDE
     Dosage: EACH MORNING
     Dates: start: 20190503

REACTIONS (2)
  - Hyponatraemia [Recovering/Resolving]
  - Circulatory collapse [Unknown]

NARRATIVE: CASE EVENT DATE: 20190808
